FAERS Safety Report 7302229-1 (Version None)
Quarter: 2011Q1

REPORT INFORMATION
  Report Type: 
  Country: None (occurrence: None)
  Receive Date: 20110218
  Receipt Date: 20110214
  Transmission Date: 20110831
  Serious: Yes (Death, Hospitalization, Other)
  Sender: FDA-Public Use
  Company Number: PHHY2011FR12327

PATIENT
  Sex: Female

DRUGS (2)
  1. FLUDARA [Suspect]
     Indication: BONE MARROW TRANSPLANT
     Dosage: 54 MG, QD
     Route: 042
     Dates: start: 20101112, end: 20101114
  2. ENDOXAN [Suspect]
     Indication: BONE MARROW TRANSPLANT
     Dosage: 1360 MG, QD
     Route: 042
     Dates: start: 20101112, end: 20101114

REACTIONS (20)
  - BLADDER DILATATION [None]
  - HYPOMAGNESAEMIA [None]
  - MYOCLONUS [None]
  - RENAL FAILURE ACUTE [None]
  - FEBRILE BONE MARROW APLASIA [None]
  - RESPIRATORY DISTRESS [None]
  - DISTURBANCE IN ATTENTION [None]
  - HYPOCALCAEMIA [None]
  - HYPOKALAEMIA [None]
  - CONFUSIONAL STATE [None]
  - ANAEMIA HAEMOLYTIC AUTOIMMUNE [None]
  - ENCEPHALITIS [None]
  - MULTI-ORGAN FAILURE [None]
  - OEDEMA [None]
  - BLOOD PHOSPHORUS DECREASED [None]
  - NERVOUS SYSTEM DISORDER [None]
  - PNEUMONIA [None]
  - SEPSIS [None]
  - HEMIPARESIS [None]
  - CONVULSION [None]
